FAERS Safety Report 18021428 (Version 3)
Quarter: 2020Q3

REPORT INFORMATION
  Report Type: Report from Study
  Country: MX (occurrence: MX)
  Receive Date: 20200714
  Receipt Date: 20200918
  Transmission Date: 20201103
  Serious: Yes (Other)
  Sender: FDA-Public Use
  Company Number: MX-BAYER-2020-137912

PATIENT
  Age: 78 Year
  Sex: Male
  Weight: 52 kg

DRUGS (4)
  1. NEXAVAR [Suspect]
     Active Substance: SORAFENIB
     Indication: HEPATOCELLULAR CARCINOMA
     Dosage: 400 MG, BID
     Route: 048
     Dates: start: 20200620, end: 20200627
  2. NEXAVAR [Suspect]
     Active Substance: SORAFENIB
     Indication: HEPATOCELLULAR CARCINOMA
     Dosage: 200 MG, BID
     Route: 048
     Dates: start: 2020
  3. NEXAVAR [Suspect]
     Active Substance: SORAFENIB
     Indication: HEPATOCELLULAR CARCINOMA
     Dosage: 400 MG, BID
     Route: 048
     Dates: start: 20200608
  4. NEXAVAR [Suspect]
     Active Substance: SORAFENIB
     Indication: HEPATOCELLULAR CARCINOMA
     Dosage: UNK
     Dates: start: 20200719, end: 2020

REACTIONS (11)
  - Fatigue [Recovered/Resolved]
  - Nausea [None]
  - Pyrexia [None]
  - Off label use [None]
  - Cholelithiasis [None]
  - Product administration interrupted [None]
  - Weight decreased [Not Recovered/Not Resolved]
  - Abscess [None]
  - Abdominal pain upper [None]
  - Nausea [Recovering/Resolving]
  - Memory impairment [Recovered/Resolved]

NARRATIVE: CASE EVENT DATE: 20200608
